FAERS Safety Report 8929066 (Version 1)
Quarter: 2012Q4

REPORT INFORMATION
  Report Type: 
  Country: SI (occurrence: SI)
  Receive Date: 20121127
  Receipt Date: 20121127
  Transmission Date: 20130627
  Serious: Yes (Life-Threatening, Hospitalization)
  Sender: FDA-Public Use
  Company Number: SI-MYLANLABS-2012S1023761

PATIENT
  Age: 87 Year
  Sex: Female

DRUGS (5)
  1. NITROFURANTOIN [Suspect]
     Indication: URINARY TRACT INFECTION
     Route: 065
  2. METOPROLOL [Concomitant]
     Indication: HYPERTENSION
     Route: 065
  3. RAMIPRIL [Concomitant]
     Indication: HYPERTENSION
     Dosage: 5mg daily
     Route: 065
  4. FUROSEMIDE [Concomitant]
     Indication: HYPERTENSION
     Dosage: 40mg daily
     Route: 065
  5. RIVASTIGMINE [Concomitant]
     Indication: DEMENTIA ALZHEIMER^S TYPE
     Dosage: 4.6mg/24h daily
     Route: 062

REACTIONS (2)
  - Grand mal convulsion [Recovered/Resolved]
  - Hyponatraemia [Unknown]
